FAERS Safety Report 4369093-4 (Version None)
Quarter: 2004Q2

REPORT INFORMATION
  Report Type: 
  Country: None (occurrence: None)
  Receive Date: 20040528
  Receipt Date: 20040513
  Transmission Date: 20050107
  Serious: Yes (Hospitalization)
  Sender: FDA-Public Use
  Company Number: 2004213562FR

PATIENT
  Age: 43 Year
  Sex: Female

DRUGS (7)
  1. FARMORUBICINA(EPIRUBICIN HYDROCHLORIDE) SOLUTION, STERILE [Suspect]
     Indication: BREAST CANCER
     Dosage: CYCLIC
  2. CYCLOPHOSPHAMIDE [Suspect]
     Indication: BREAST CANCER
     Dosage: CYCLIC
  3. FLUOROURACIL [Suspect]
     Indication: BREAST CANCER
     Dosage: CYCLIC
  4. COMPARATOR-DOCETAXEL(DOCETAXEL) [Suspect]
     Indication: BREAST CANCER
     Dosage: CYCLIC
  5. COMPARATOR-MESNA(MESNA) INJECTION [Suspect]
     Indication: BREAST CANCER
     Dosage: CYCLIC
  6. COMPARATOR-FILGRASTIM(FILGRASTIM) [Suspect]
     Dosage: CYCLIC
  7. CLINICAL TRIAL PROCEDURE(CLINICAL TRIAL PROCEDURE) UNKNOWN [Suspect]

REACTIONS (10)
  - ACUTE MYELOID LEUKAEMIA [None]
  - BLOOD CREATININE INCREASED [None]
  - BLOOD LACTATE DEHYDROGENASE INCREASED [None]
  - BLOOD UREA INCREASED [None]
  - DISSEMINATED INTRAVASCULAR COAGULATION [None]
  - HAEMOGLOBIN DECREASED [None]
  - OXYGEN SUPPLEMENTATION [None]
  - PLATELET COUNT INCREASED [None]
  - PLEURAL EFFUSION [None]
  - PYREXIA [None]
